FAERS Safety Report 24247754 (Version 2)
Quarter: 2024Q3

REPORT INFORMATION
  Report Type: Spontaneous
  Country: BE (occurrence: BE)
  Receive Date: 20240826
  Receipt Date: 20240829
  Transmission Date: 20241017
  Serious: Yes (Hospitalization)
  Sender: BOEHRINGER INGELHEIM
  Company Number: None

PATIENT
  Age: 77 Year
  Sex: Female
  Weight: 63.5 kg

DRUGS (1)
  1. JARDIANCE [Suspect]
     Active Substance: EMPAGLIFLOZIN
     Indication: Heart failure with preserved ejection fraction
     Route: 048
     Dates: start: 20240617, end: 20240805

REACTIONS (3)
  - Pyonephrosis [Recovering/Resolving]
  - Urinary tract candidiasis [Recovering/Resolving]
  - Ureteral stent insertion [Recovering/Resolving]

NARRATIVE: CASE EVENT DATE: 20240801
